FAERS Safety Report 24630927 (Version 1)
Quarter: 2024Q4

REPORT INFORMATION
  Report Type: Spontaneous
  Country: JP (occurrence: JP)
  Receive Date: 20241118
  Receipt Date: 20241118
  Transmission Date: 20250115
  Serious: Yes (Other)
  Sender: ALEXION PHARMACEUTICALS
  Company Number: JP-ASTRAZENECA-240076499_013120_P_1

PATIENT
  Age: 60 Year

DRUGS (40)
  1. IMJUDO [Suspect]
     Active Substance: TREMELIMUMAB\TREMELIMUMAB-ACTL
     Indication: Non-small cell lung cancer
     Dosage: DOSE UNKNOWN
  2. IMJUDO [Suspect]
     Active Substance: TREMELIMUMAB\TREMELIMUMAB-ACTL
     Dosage: DOSE UNKNOWN
  3. IMJUDO [Suspect]
     Active Substance: TREMELIMUMAB\TREMELIMUMAB-ACTL
     Dosage: DOSE UNKNOWN
  4. IMJUDO [Suspect]
     Active Substance: TREMELIMUMAB\TREMELIMUMAB-ACTL
     Dosage: DOSE UNKNOWN
  5. IMFINZI [Suspect]
     Active Substance: DURVALUMAB
     Indication: Non-small cell lung cancer
     Dosage: DOSE UNKNOWN
  6. IMFINZI [Suspect]
     Active Substance: DURVALUMAB
     Dosage: DOSE UNKNOWN
  7. IMFINZI [Suspect]
     Active Substance: DURVALUMAB
     Dosage: DOSE UNKNOWN
  8. IMFINZI [Suspect]
     Active Substance: DURVALUMAB
     Dosage: DOSE UNKNOWN
  9. IMFINZI [Suspect]
     Active Substance: DURVALUMAB
     Dosage: DOSE UNKNOWN, FREQUENCY: Q4WK
  10. IMFINZI [Suspect]
     Active Substance: DURVALUMAB
     Dosage: DOSE UNKNOWN, FREQUENCY: Q4WK
  11. IMFINZI [Suspect]
     Active Substance: DURVALUMAB
     Dosage: DOSE UNKNOWN, FREQUENCY: Q4WK
  12. IMFINZI [Suspect]
     Active Substance: DURVALUMAB
     Dosage: DOSE UNKNOWN, FREQUENCY: Q4WK
  13. IMFINZI [Suspect]
     Active Substance: DURVALUMAB
     Dosage: DOSE UNKNOWN, FREQUENCY: Q4WK
  14. IMFINZI [Suspect]
     Active Substance: DURVALUMAB
     Dosage: DOSE UNKNOWN, FREQUENCY: Q4WK
  15. IMFINZI [Suspect]
     Active Substance: DURVALUMAB
     Dosage: DOSE UNKNOWN, FREQUENCY: Q4WK
  16. IMFINZI [Suspect]
     Active Substance: DURVALUMAB
     Dosage: DOSE UNKNOWN, FREQUENCY: Q4WK
  17. CARBOPLATIN [Concomitant]
     Active Substance: CARBOPLATIN
     Indication: Non-small cell lung cancer
     Dosage: DOSE UNKNOWN
     Route: 065
  18. CARBOPLATIN [Concomitant]
     Active Substance: CARBOPLATIN
     Dosage: DOSE UNKNOWN
  19. CARBOPLATIN [Concomitant]
     Active Substance: CARBOPLATIN
     Dosage: DOSE UNKNOWN
     Route: 065
  20. CARBOPLATIN [Concomitant]
     Active Substance: CARBOPLATIN
     Dosage: DOSE UNKNOWN
  21. CARBOPLATIN [Concomitant]
     Active Substance: CARBOPLATIN
     Dosage: DOSE UNKNOWN, FREQUENCY: Q4WK
     Route: 065
  22. CARBOPLATIN [Concomitant]
     Active Substance: CARBOPLATIN
     Dosage: DOSE UNKNOWN, FREQUENCY: Q4WK
  23. CARBOPLATIN [Concomitant]
     Active Substance: CARBOPLATIN
     Dosage: DOSE UNKNOWN, FREQUENCY: Q4WK
     Route: 065
  24. CARBOPLATIN [Concomitant]
     Active Substance: CARBOPLATIN
     Dosage: DOSE UNKNOWN, FREQUENCY: Q4WK
  25. CARBOPLATIN [Concomitant]
     Active Substance: CARBOPLATIN
     Dosage: AUC6
     Route: 065
  26. CARBOPLATIN [Concomitant]
     Active Substance: CARBOPLATIN
     Dosage: AUC6
  27. CARBOPLATIN [Concomitant]
     Active Substance: CARBOPLATIN
     Dosage: AUC6
     Route: 065
  28. CARBOPLATIN [Concomitant]
     Active Substance: CARBOPLATIN
     Dosage: AUC6
  29. PEMETREXED [Concomitant]
     Active Substance: PEMETREXED
     Indication: Non-small cell lung cancer
     Dosage: DOSE UNKNOWN
     Route: 065
  30. PEMETREXED [Concomitant]
     Active Substance: PEMETREXED
     Dosage: DOSE UNKNOWN
  31. PEMETREXED [Concomitant]
     Active Substance: PEMETREXED
     Dosage: DOSE UNKNOWN
     Route: 065
  32. PEMETREXED [Concomitant]
     Active Substance: PEMETREXED
     Dosage: DOSE UNKNOWN
  33. PEMETREXED [Concomitant]
     Active Substance: PEMETREXED
     Dosage: DOSE UNKNOWN, FREQUENCY: Q4WK
     Route: 065
  34. PEMETREXED [Concomitant]
     Active Substance: PEMETREXED
     Dosage: DOSE UNKNOWN, FREQUENCY: Q4WK
  35. PEMETREXED [Concomitant]
     Active Substance: PEMETREXED
     Dosage: DOSE UNKNOWN, FREQUENCY: Q4WK
     Route: 065
  36. PEMETREXED [Concomitant]
     Active Substance: PEMETREXED
     Dosage: DOSE UNKNOWN, FREQUENCY: Q4WK
  37. PEMETREXED [Concomitant]
     Active Substance: PEMETREXED
     Route: 065
  38. PEMETREXED [Concomitant]
     Active Substance: PEMETREXED
  39. PEMETREXED [Concomitant]
     Active Substance: PEMETREXED
     Route: 065
  40. PEMETREXED [Concomitant]
     Active Substance: PEMETREXED

REACTIONS (5)
  - Adrenal insufficiency [Unknown]
  - Paralysis recurrent laryngeal nerve [Unknown]
  - Pneumonia aspiration [Unknown]
  - Neutrophil count decreased [Unknown]
  - White blood cell count decreased [Unknown]
